FAERS Safety Report 10682092 (Version 1)
Quarter: 2014Q4

REPORT INFORMATION
  Report Type: Spontaneous
  Country: CH (occurrence: None)
  Receive Date: 20141224
  Receipt Date: 20141224
  Transmission Date: 20150529
  Serious: Yes (Other)
  Sender: FDA-Public Use
  Company Number: FK201406381

PATIENT
  Age: 73 Year

DRUGS (1)
  1. HALOPERIDOL INJECTION (MANUFACTURER UNKNOWN) (HALOPERIDOL LACTATE) (HALOPERIDOL LACTATE) [Suspect]
     Active Substance: HALOPERIDOL LACTATE
     Indication: PRODUCT USED FOR UNKNOWN INDICATION

REACTIONS (2)
  - Parotitis [None]
  - Dry mouth [None]
